FAERS Safety Report 9848224 (Version 1)
Quarter: 2014Q1

REPORT INFORMATION
  Report Type: Spontaneous
  Country: US (occurrence: None)
  Receive Date: 20140123
  Receipt Date: 20140123
  Transmission Date: 20141002
  Serious: Yes (Other)
  Sender: FDA-Public Use
  Company Number: None

PATIENT
  Age: 17 Year
  Sex: Male
  Weight: 53.52 kg

DRUGS (2)
  1. DIVALPROEX ER [Suspect]
     Indication: AFFECTIVE DISORDER
     Dosage: 1000 MG, QHS/BEDTIME, ORAL
     Route: 048
     Dates: start: 20130801, end: 20131004
  2. QUETIAPINE [Suspect]
     Indication: AFFECTIVE DISORDER
     Route: 048
     Dates: start: 20130801, end: 20131020

REACTIONS (5)
  - Leukopenia [None]
  - Neutropenia [None]
  - Lymphocyte percentage increased [None]
  - Monocyte percentage increased [None]
  - Eosinophil percentage increased [None]
